FAERS Safety Report 8257833-3 (Version None)
Quarter: 2012Q2

REPORT INFORMATION
  Report Type: 
  Country: None (occurrence: None)
  Receive Date: 20120404
  Receipt Date: 20120330
  Transmission Date: 20120825
  Serious: No
  Sender: FDA-Public Use
  Company Number: US-BIOGENIDEC-2012BI011282

PATIENT
  Age: 51 Year
  Sex: Female

DRUGS (3)
  1. METHADONE HCL [Concomitant]
     Indication: RHEUMATOID ARTHRITIS
  2. METHADONE HCL [Concomitant]
     Indication: FIBROMYALGIA
  3. AVONEX [Suspect]
     Indication: MULTIPLE SCLEROSIS
     Route: 030
     Dates: start: 20120314

REACTIONS (1)
  - URINE OUTPUT DECREASED [None]
